FAERS Safety Report 19575932 (Version 1)
Quarter: 2021Q3

REPORT INFORMATION
  Report Type: Spontaneous
  Country: US (occurrence: US)
  Receive Date: 20210718
  Receipt Date: 20210718
  Transmission Date: 20211014
  Serious: Yes (Disabling)
  Sender: FDA-Public Use
  Company Number: None

PATIENT
  Age: 43 Year
  Sex: Female

DRUGS (1)
  1. PROTOPIC [Suspect]
     Active Substance: TACROLIMUS
     Indication: ECZEMA
     Route: 061
     Dates: start: 20110103, end: 20190107

REACTIONS (10)
  - Steroid dependence [None]
  - Skin weeping [None]
  - Nerve injury [None]
  - Skin exfoliation [None]
  - Lymphadenopathy [None]
  - Body temperature fluctuation [None]
  - Withdrawal syndrome [None]
  - Skin warm [None]
  - Skin swelling [None]
  - Photosensitivity reaction [None]

NARRATIVE: CASE EVENT DATE: 20190601
